FAERS Safety Report 16906256 (Version 1)
Quarter: 2019Q4

REPORT INFORMATION
  Report Type: Spontaneous
  Country: US (occurrence: US)
  Receive Date: 20191011
  Receipt Date: 20191011
  Transmission Date: 20200122
  Serious: Yes (Congenital Anomaly, Other)
  Sender: FDA-Public Use
  Company Number: US-SUN PHARMACEUTICAL INDUSTRIES LTD-2019R1-205343

PATIENT
  Sex: Female

DRUGS (1)
  1. METHOTREXATE. [Suspect]
     Active Substance: METHOTREXATE
     Indication: PRODUCT USED FOR UNKNOWN INDICATION
     Dosage: UNK
     Route: 064

REACTIONS (9)
  - Syndactyly [Unknown]
  - Foetal exposure during pregnancy [Unknown]
  - Atrioventricular septal defect [Unknown]
  - Exophthalmos [Unknown]
  - Patent ductus arteriosus [Unknown]
  - Limb hypoplasia congenital [Unknown]
  - Anterior displaced anus [Unknown]
  - Micrognathia [Unknown]
  - Cleft palate [Unknown]
